FAERS Safety Report 18710560 (Version 1)
Quarter: 2021Q1

REPORT INFORMATION
  Report Type: Spontaneous
  Country: US (occurrence: US)
  Receive Date: 20210107
  Receipt Date: 20210107
  Transmission Date: 20210419
  Serious: No
  Sender: FDA-Public Use
  Company Number: US-JNJFOC-20201240765

PATIENT
  Age: 65 Year
  Sex: Female
  Weight: 86.26 kg

DRUGS (1)
  1. LISTERINE FRESHBURST ANTISEPTIC [Suspect]
     Active Substance: EUCALYPTOL\MENTHOL\METHYL SALICYLATE\THYMOL
     Indication: DENTAL DISORDER PROPHYLAXIS
     Dosage: THIS BOTTLE DID NOT USED AND STARTED TO USE ON 18?DEC?2020
     Route: 048

REACTIONS (2)
  - Product packaging difficult to open [Unknown]
  - Product package associated injury [Recovering/Resolving]

NARRATIVE: CASE EVENT DATE: 20201218
